FAERS Safety Report 21869049 (Version 2)
Quarter: 2023Q1

REPORT INFORMATION
  Report Type: Report from Study
  Country: US (occurrence: US)
  Receive Date: 20230117
  Receipt Date: 20230119
  Transmission Date: 20230417
  Serious: No
  Sender: FDA-Public Use
  Company Number: US-ELI_LILLY_AND_COMPANY-US202301005408

PATIENT
  Sex: Female

DRUGS (2)
  1. FORTEO [Suspect]
     Active Substance: TERIPARATIDE
     Indication: Product used for unknown indication
     Dosage: 20 UG, UNKNOWN
     Route: 058
     Dates: start: 202207
  2. FORTEO [Suspect]
     Active Substance: TERIPARATIDE
     Indication: Product used for unknown indication
     Dosage: 20 UG, UNKNOWN
     Route: 058
     Dates: start: 202207

REACTIONS (9)
  - Myalgia [Recovered/Resolved]
  - Arthralgia [Recovered/Resolved]
  - Injection site haemorrhage [Recovered/Resolved]
  - Arthritis [Not Recovered/Not Resolved]
  - Injection site pain [Recovered/Resolved]
  - Injection site bruising [Recovered/Resolved]
  - Insomnia [Recovered/Resolved]
  - Product dose omission issue [Unknown]
  - Nausea [Recovered/Resolved]
